FAERS Safety Report 10017543 (Version 2)
Quarter: 2014Q1

REPORT INFORMATION
  Report Type: Spontaneous
  Country: JP (occurrence: JP)
  Receive Date: 20140318
  Receipt Date: 20140318
  Transmission Date: 20141002
  Serious: Yes (Life-Threatening, Other)
  Sender: FDA-Public Use
  Company Number: JP-ASTRAZENECA-2014SE17679

PATIENT
  Age: 47 Year
  Sex: Female

DRUGS (1)
  1. CARBOCAIN [Suspect]
     Route: 065
     Dates: start: 201305, end: 201305

REACTIONS (1)
  - Anaphylactic shock [Recovered/Resolved]
